FAERS Safety Report 5414085-7 (Version None)
Quarter: 2007Q3

REPORT INFORMATION
  Report Type: 
  Country: None (occurrence: None)
  Receive Date: 20070814
  Receipt Date: 20070806
  Transmission Date: 20080115
  Serious: Yes (Hospitalization)
  Sender: FDA-Public Use
  Company Number: US-ELI_LILLY_AND_COMPANY-US200708002114

PATIENT
  Age: 61 Year
  Sex: Male

DRUGS (4)
  1. HUMATROPE [Suspect]
     Dosage: UNK, UNKNOWN
     Dates: start: 20030101
  2. ANTIHYPERTENSIVES [Concomitant]
  3. SYNTHROID [Concomitant]
     Indication: THYROID DISORDER
  4. LORAZEPAM [Concomitant]
     Indication: ANXIETY

REACTIONS (7)
  - ANXIETY [None]
  - ASTHENIA [None]
  - DIARRHOEA [None]
  - DYSPNOEA [None]
  - FATIGUE [None]
  - MALAISE [None]
  - STRESS [None]
